FAERS Safety Report 8287452-4 (Version None)
Quarter: 2012Q2

REPORT INFORMATION
  Report Type: 
  Country: None (occurrence: None)
  Receive Date: 20120411
  Receipt Date: 20120404
  Transmission Date: 20120825
  Serious: Yes (Death)
  Sender: FDA-Public Use
  Company Number: WAES 1202USA01760

PATIENT
  Age: 32 Year
  Sex: Male

DRUGS (4)
  1. DESOMORPHINE [Suspect]
  2. RALTEGRAVIR [Suspect]
     Indication: HIV INFECTION
     Dosage: TAB/BID
     Route: 048
     Dates: start: 20120125, end: 20120206
  3. RIFABUTIN [Concomitant]
  4. TAB KIVEXA (ABACAVIR SULFATE (+) LAMLVUDINE) [Suspect]
     Indication: HIV INFECTION
     Dosage: TAB/DAILY
     Route: 048
     Dates: start: 20120125, end: 20120206

REACTIONS (4)
  - CARDIOPULMONARY FAILURE [None]
  - PNEUMONIA [None]
  - TOXICITY TO VARIOUS AGENTS [None]
  - ACCIDENTAL POISONING [None]
